FAERS Safety Report 6546523-0 (Version None)
Quarter: 2010Q1

REPORT INFORMATION
  Report Type: 
  Country: None (occurrence: None)
  Receive Date: 20100122
  Receipt Date: 20100114
  Transmission Date: 20100710
  Serious: Yes (Other)
  Sender: FDA-Public Use
  Company Number: FR-EISAI INC.-E7273-00122-SPO-FR

PATIENT
  Age: 66 Year
  Sex: Male

DRUGS (4)
  1. TARGRETIN [Suspect]
     Dosage: 6-8 CAPSULES 75MG
     Route: 048
     Dates: start: 20040601, end: 20091027
  2. TAHOR [Concomitant]
  3. ZANIDIP [Concomitant]
     Dosage: UNKNOWN
  4. LEVOTHYROXINE SODIUM [Concomitant]
     Indication: HYPOTHYROIDISM
     Dosage: UNKNOWN

REACTIONS (1)
  - CATARACT [None]
